FAERS Safety Report 10237002 (Version 1)
Quarter: 2014Q1

REPORT INFORMATION
  Report Type: Spontaneous
  Country: US (occurrence: None)
  Receive Date: 20140306
  Receipt Date: 20140306
  Transmission Date: 20141002
  Serious: Yes (Disabling, Other)
  Sender: FDA-Public Use
  Company Number: 163-21880-13054731

PATIENT
  Age: 78 Year
  Sex: Male

DRUGS (1)
  1. REVLIMID (LENALIDOMIDE) (10 MILLIGRAM, CAPSULES) [Suspect]
     Indication: MYELODYSPLASTIC SYNDROME
     Dosage: 28 IN 28 D
     Route: 048
     Dates: start: 201210

REACTIONS (6)
  - Fatigue [None]
  - Asthenia [None]
  - Dyspnoea [None]
  - Hypophagia [None]
  - Platelet count decreased [None]
  - Haemoglobin decreased [None]
